FAERS Safety Report 14232911 (Version 1)
Quarter: 2017Q4

REPORT INFORMATION
  Report Type: Other
  Country: RO (occurrence: RO)
  Receive Date: 20171129
  Receipt Date: 20171129
  Transmission Date: 20180321
  Serious: Yes (Life-Threatening)
  Sender: FDA-Public Use
  Company Number: RO-ATLAS PHARMACEUTICALS, LLC-2036268

PATIENT
  Age: 65 Year
  Sex: Female

DRUGS (1)
  1. METFORMIN [Suspect]
     Active Substance: METFORMIN HYDROCHLORIDE
     Indication: TYPE 2 DIABETES MELLITUS
     Route: 065

REACTIONS (4)
  - Coma [Recovering/Resolving]
  - Toxicity to various agents [Unknown]
  - Lactic acidosis [Recovering/Resolving]
  - Acute kidney injury [Not Recovered/Not Resolved]
